FAERS Safety Report 25605068 (Version 1)
Quarter: 2025Q3

REPORT INFORMATION
  Report Type: Spontaneous
  Country: EU (occurrence: EU)
  Receive Date: 20250725
  Receipt Date: 20250725
  Transmission Date: 20251020
  Serious: Yes (Other)
  Sender: ORGANON
  Company Number: EU-MLMSERVICE-20180920-1385944-1

PATIENT
  Age: 81 Year
  Sex: Female

DRUGS (1)
  1. LOSARTAN POTASSIUM [Suspect]
     Active Substance: LOSARTAN POTASSIUM
     Indication: Hypertension
     Dosage: 100 MG/DAY

REACTIONS (3)
  - Colitis microscopic [Recovered/Resolved]
  - Dysphonia [Unknown]
  - Cough [Unknown]
